FAERS Safety Report 5669975-7 (Version None)
Quarter: 2008Q1

REPORT INFORMATION
  Report Type: 
  Country: None (occurrence: None)
  Receive Date: 20080312
  Receipt Date: 20080229
  Transmission Date: 20080703
  Serious: Yes (Death)
  Sender: FDA-Public Use
  Company Number: 2008-00727

PATIENT
  Age: 63 Year
  Sex: Male

DRUGS (1)
  1. VELCADE [Suspect]
     Indication: MULTIPLE MYELOMA
     Dosage: 1.30 MG/M2
     Dates: start: 20080110, end: 20080121

REACTIONS (4)
  - ASPIRATION [None]
  - CONFUSIONAL STATE [None]
  - DYSPHAGIA [None]
  - LOSS OF CONSCIOUSNESS [None]
